FAERS Safety Report 8441138-1 (Version None)
Quarter: 2012Q2

REPORT INFORMATION
  Report Type: 
  Country: None (occurrence: None)
  Receive Date: 20120615
  Receipt Date: 20120607
  Transmission Date: 20120825
  Serious: Yes (Hospitalization, Other)
  Sender: FDA-Public Use
  Company Number: ES-VERTEX PHARMACEUTICALS INC.-000000000000000710

PATIENT
  Age: 62 Year
  Sex: Male

DRUGS (4)
  1. RIBAVIRIN [Concomitant]
     Indication: HEPATITIS C
     Route: 065
     Dates: start: 20120227
  2. PEGINTERFERON ALFA-2A [Concomitant]
     Indication: HEPATITIS C
     Route: 065
     Dates: start: 20120227
  3. TELAPREVIR [Suspect]
     Indication: HEPATITIS C
     Dosage: DOSAGE FORM: TABLET
     Route: 048
     Dates: start: 20120227
  4. RIBAVIRIN [Concomitant]
     Route: 065

REACTIONS (6)
  - PYREXIA [None]
  - PNEUMONIA [None]
  - RASH [None]
  - ORAL CANDIDIASIS [None]
  - TREMOR [None]
  - ANAEMIA [None]
